FAERS Safety Report 7621343-4 (Version None)
Quarter: 2011Q3

REPORT INFORMATION
  Report Type: 
  Country: None (occurrence: None)
  Receive Date: 20110719
  Receipt Date: 20110712
  Transmission Date: 20111222
  Serious: Yes (Other)
  Sender: FDA-Public Use
  Company Number: US-BAYER-2011-048802

PATIENT
  Age: 28 Year
  Sex: Female
  Weight: 61.224 kg

DRUGS (1)
  1. MIRENA [Suspect]
     Indication: CONTRACEPTION
     Dosage: 20 MCG/24HR, CONT
     Route: 015
     Dates: start: 20101222, end: 20110606

REACTIONS (4)
  - DEVICE BREAKAGE [None]
  - UNEVALUABLE EVENT [None]
  - MEDICAL DEVICE COMPLICATION [None]
  - DEVICE DISLOCATION [None]
